FAERS Safety Report 11857609 (Version 1)
Quarter: 2015Q4

REPORT INFORMATION
  Report Type: Spontaneous
  Country: US (occurrence: None)
  Receive Date: 20151221
  Receipt Date: 20151221
  Transmission Date: 20160305
  Serious: No
  Sender: FDA-Public Use
  Company Number: None

PATIENT
  Age: 42 Year
  Sex: Female

DRUGS (5)
  1. NEUPOGEN [Suspect]
     Active Substance: FILGRASTIM
     Indication: BREAST CANCER METASTATIC
     Dosage: APPROXIMATELY SINCE MARCH 2015-  7 DOSES ONE PER NIGHT X 7 DAYS
     Dates: start: 201503
  2. LETROZOLE. [Concomitant]
     Active Substance: LETROZOLE
  3. NEUPOGEN [Concomitant]
     Active Substance: FILGRASTIM
  4. IBRANCE [Concomitant]
     Active Substance: PALBOCICLIB
  5. NEUPOGEN [Suspect]
     Active Substance: FILGRASTIM
     Indication: NEUTROPENIA
     Dosage: APPROXIMATELY SINCE MARCH 2015-  7 DOSES ONE PER NIGHT X 7 DAYS
     Dates: start: 201503

REACTIONS (3)
  - Back pain [None]
  - Injection site pain [None]
  - White blood cell count decreased [None]

NARRATIVE: CASE EVENT DATE: 20150301
